FAERS Safety Report 24298837 (Version 1)
Quarter: 2024Q3

REPORT INFORMATION
  Report Type: Spontaneous
  Country: JP (occurrence: JP)
  Receive Date: 20240909
  Receipt Date: 20240909
  Transmission Date: 20241016
  Serious: Yes (Death)
  Sender: JOHNSON AND JOHNSON
  Company Number: JP-JNJFOC-20240918255

PATIENT
  Age: 7 Decade
  Sex: Female

DRUGS (1)
  1. OPSUMIT [Suspect]
     Active Substance: MACITENTAN
     Indication: Systemic lupus erythematosus
     Route: 048
     Dates: start: 20211119

REACTIONS (2)
  - Road traffic accident [Fatal]
  - Off label use [Unknown]

NARRATIVE: CASE EVENT DATE: 20211119
